FAERS Safety Report 24358389 (Version 1)
Quarter: 2024Q3

REPORT INFORMATION
  Report Type: Spontaneous
  Country: CN (occurrence: CN)
  Receive Date: 20240924
  Receipt Date: 20240924
  Transmission Date: 20241016
  Serious: Yes (Other)
  Sender: PFIZER
  Company Number: CN-PFIZER INC-PV202400122750

PATIENT
  Age: 20 Year
  Sex: Male
  Weight: 85 kg

DRUGS (1)
  1. UNASYN [Suspect]
     Active Substance: AMPICILLIN SODIUM\SULBACTAM SODIUM
     Indication: Bronchitis
     Dosage: UNK
     Dates: start: 20240905, end: 20240907

REACTIONS (2)
  - Facial paralysis [Unknown]
  - Face oedema [Unknown]

NARRATIVE: CASE EVENT DATE: 20240901
